FAERS Safety Report 6516393-5 (Version None)
Quarter: 2009Q4

REPORT INFORMATION
  Report Type: 
  Country: None (occurrence: None)
  Receive Date: 20091223
  Receipt Date: 20091214
  Transmission Date: 20100525
  Serious: Yes (Other)
  Sender: FDA-Public Use
  Company Number: B0596809A

PATIENT
  Age: 26 Year
  Sex: Female

DRUGS (1)
  1. RELENZA [Suspect]
     Indication: H1N1 INFLUENZA
     Route: 055

REACTIONS (1)
  - STILLBIRTH [None]
